FAERS Safety Report 9017590 (Version 2)
Quarter: 2013Q1

REPORT INFORMATION
  Report Type: Spontaneous
  Country: US (occurrence: US)
  Receive Date: 20130117
  Receipt Date: 20130308
  Transmission Date: 20140127
  Serious: Yes (Other)
  Sender: FDA-Public Use
  Company Number: US-BAXTER-2013BAX001379

PATIENT
  Sex: 0

DRUGS (2)
  1. TISSEEL VH [Suspect]
     Indication: EYE OPERATION
     Route: 065
  2. TISSEEL VH [Suspect]
     Indication: OFF LABEL USE

REACTIONS (1)
  - Graft complication [Unknown]
